FAERS Safety Report 16263159 (Version 2)
Quarter: 2019Q4

REPORT INFORMATION
  Report Type: Spontaneous
  Country: US (occurrence: US)
  Receive Date: 20190502
  Receipt Date: 20191114
  Transmission Date: 20200122
  Serious: Yes (Other)
  Sender: FDA-Public Use
  Company Number: US-INVENTIA-000009

PATIENT
  Sex: Female

DRUGS (1)
  1. TELMISARTAN. [Suspect]
     Active Substance: TELMISARTAN
     Indication: PRODUCT USED FOR UNKNOWN INDICATION
     Dates: start: 201903

REACTIONS (3)
  - Product taste abnormal [Unknown]
  - Atrial fibrillation [Unknown]
  - Blood pressure inadequately controlled [Unknown]
